FAERS Safety Report 17317561 (Version 1)
Quarter: 2020Q1

REPORT INFORMATION
  Report Type: Spontaneous
  Country: US (occurrence: US)
  Receive Date: 20200124
  Receipt Date: 20200124
  Transmission Date: 20200409
  Serious: No
  Sender: FDA-Public Use
  Company Number: US-OTSUKA-2019_033298

PATIENT
  Age: 82 Year
  Sex: Female

DRUGS (6)
  1. PAXIL [Concomitant]
     Active Substance: PAROXETINE HYDROCHLORIDE
     Indication: ADJUVANT THERAPY
     Dosage: 40 MG, UNK
     Route: 065
  2. REXULTI [Suspect]
     Active Substance: BREXPIPRAZOLE
     Indication: ADJUVANT THERAPY
     Dosage: 1 MG, UNK
     Route: 065
  3. REXULTI [Suspect]
     Active Substance: BREXPIPRAZOLE
     Dosage: HALF A TABLET OF 0.5 MG, DAILY
     Route: 065
     Dates: start: 201909
  4. PAXIL [Concomitant]
     Active Substance: PAROXETINE HYDROCHLORIDE
     Indication: ANXIETY
  5. REXULTI [Suspect]
     Active Substance: BREXPIPRAZOLE
     Indication: ANXIETY
     Dosage: 0.5 MG, UNK
     Route: 065
  6. REXULTI [Suspect]
     Active Substance: BREXPIPRAZOLE
     Dosage: 0.5 MG, UNK (SPLITTING A 1 MG PILL TO GET THE 0.5 MG DOSE)
     Route: 065
     Dates: start: 20190918

REACTIONS (3)
  - Dyspepsia [Not Recovered/Not Resolved]
  - Abdominal discomfort [Not Recovered/Not Resolved]
  - Product use in unapproved indication [Unknown]
